FAERS Safety Report 12833197 (Version 2)
Quarter: 2017Q1

REPORT INFORMATION
  Report Type: Spontaneous
  Country: CA (occurrence: CA)
  Receive Date: 20161010
  Receipt Date: 20170313
  Transmission Date: 20170428
  Serious: Yes (Death, Hospitalization, Other)
  Sender: FDA-Public Use
  Company Number: CA-009507513-1512CAN003410

PATIENT
  Age: 66 Year
  Sex: Male

DRUGS (3)
  1. TEMODAL [Suspect]
     Active Substance: TEMOZOLOMIDE
     Dosage: 140 MG, DAILY X 5 DAYS
     Route: 048
     Dates: start: 2016
  2. TEMODAL [Suspect]
     Active Substance: TEMOZOLOMIDE
     Dosage: 140 MG, DAILY X 5 DAYS
     Route: 048
     Dates: end: 201607
  3. TEMODAL [Suspect]
     Active Substance: TEMOZOLOMIDE
     Indication: GLIOBLASTOMA
     Dosage: 135 MG, DAILY X 42 DAYS (AS INDUCTION)
     Route: 048
     Dates: start: 20150914, end: 20151022

REACTIONS (4)
  - Death [Fatal]
  - Platelet count decreased [Unknown]
  - Malignant neoplasm progression [Unknown]
  - Adverse event [Not Recovered/Not Resolved]

NARRATIVE: CASE EVENT DATE: 2015
